FAERS Safety Report 21719971 (Version 1)
Quarter: 2022Q4

REPORT INFORMATION
  Report Type: Report from Study
  Country: PR (occurrence: PR)
  Receive Date: 20221213
  Receipt Date: 20221213
  Transmission Date: 20230112
  Serious: Yes (Hospitalization, Other)
  Sender: FDA-Public Use
  Company Number: PR-ABBVIE-4229747

PATIENT
  Sex: Female
  Weight: 49.9 kg

DRUGS (5)
  1. HUMIRA [Suspect]
     Active Substance: ADALIMUMAB
     Indication: Crohn^s disease
     Route: 058
     Dates: start: 2019
  2. ELIQUIS [Concomitant]
     Active Substance: APIXABAN
     Indication: Anticoagulant therapy
     Route: 048
     Dates: start: 20221130
  3. ELASOMERAN [Concomitant]
     Active Substance: ELASOMERAN
     Indication: COVID-19
     Dosage: 2ND DOSE, 1 IN 1 ONCE
     Route: 030
     Dates: start: 202102, end: 202102
  4. ELASOMERAN [Concomitant]
     Active Substance: ELASOMERAN
     Indication: COVID-19
     Dosage: 1ST DOSE, 1 IN 1 ONCE
     Route: 030
     Dates: start: 202101, end: 202101
  5. ELASOMERAN [Concomitant]
     Active Substance: ELASOMERAN
     Indication: COVID-19
     Dosage: 3RD DOSE, 1 IN 1 ONCE
     Route: 030
     Dates: start: 202110, end: 202110

REACTIONS (5)
  - Thrombosis [Recovering/Resolving]
  - Bartholin^s gland disorder [Not Recovered/Not Resolved]
  - Cellulitis [Recovering/Resolving]
  - Blood pressure increased [Recovering/Resolving]
  - Mobility decreased [Recovering/Resolving]

NARRATIVE: CASE EVENT DATE: 20221101
